FAERS Safety Report 19611701 (Version 3)
Quarter: 2021Q3

REPORT INFORMATION
  Report Type: Spontaneous
  Country: US (occurrence: MX)
  Receive Date: 20210726
  Receipt Date: 20210902
  Transmission Date: 20211014
  Serious: Yes (Hospitalization, Other)
  Sender: FDA-Public Use
  Company Number: MX-BIOMARINAP-MX-2021-137707

PATIENT
  Age: 3 Year
  Sex: Female
  Weight: 15.6 kg

DRUGS (1)
  1. ALDURAZYME [Suspect]
     Active Substance: LARONIDASE
     Indication: MUCOPOLYSACCHARIDOSIS I
     Dosage: 2 DOSAGE FORM, Q8D
     Route: 042
     Dates: start: 20200114, end: 202103

REACTIONS (5)
  - Pneumonia [Recovered/Resolved]
  - Influenza [Recovering/Resolving]
  - Therapy cessation [Unknown]
  - Pyrexia [Recovered/Resolved]
  - Cough [Recovering/Resolving]

NARRATIVE: CASE EVENT DATE: 20200719
